FAERS Safety Report 8962066 (Version 2)
Quarter: 2013Q1

REPORT INFORMATION
  Report Type: Spontaneous
  Country: US (occurrence: US)
  Receive Date: 20121212
  Receipt Date: 20130307
  Transmission Date: 20140127
  Serious: Yes (Other)
  Sender: FDA-Public Use
  Company Number: US-ELI_LILLY_AND_COMPANY-US201212000956

PATIENT
  Sex: Male

DRUGS (5)
  1. ADCIRCA [Suspect]
     Dosage: 40 MG, QD
     Route: 058
  2. REMODULIN [Concomitant]
     Indication: PULMONARY ARTERIAL HYPERTENSION
     Dosage: UNK
     Route: 042
     Dates: start: 20120601
  3. CLARITIN [Concomitant]
  4. ZANTAC [Concomitant]
  5. ULTRAM [Concomitant]

REACTIONS (3)
  - Loss of consciousness [Recovered/Resolved]
  - Headache [Recovered/Resolved]
  - Injection site pain [Recovered/Resolved]
